FAERS Safety Report 4380602-1 (Version None)
Quarter: 2004Q2

REPORT INFORMATION
  Report Type: 
  Country: None (occurrence: None)
  Receive Date: 20040618
  Receipt Date: 20040112
  Transmission Date: 20050107
  Serious: Yes (Other)
  Sender: FDA-Public Use
  Company Number: FR-GLAXOSMITHKLINE-B0320042A

PATIENT
  Sex: Female
  Weight: 3 kg

DRUGS (2)
  1. DEROXAT [Suspect]
     Indication: DEPRESSION
     Dosage: 20MG PER DAY
  2. TERCIAN [Suspect]
     Indication: DEPRESSION
     Dosage: 2MG PER DAY

REACTIONS (7)
  - DEVELOPMENTAL COORDINATION DISORDER [None]
  - DRUG EXPOSURE DURING PREGNANCY [None]
  - DRUG EXPOSURE VIA BREAST MILK [None]
  - HYPERSOMNIA [None]
  - HYPOTONIA [None]
  - POOR WEIGHT GAIN NEONATAL [None]
  - TREMOR [None]
